FAERS Safety Report 6087710-8 (Version None)
Quarter: 2009Q1

REPORT INFORMATION
  Report Type: 
  Country: None (occurrence: None)
  Receive Date: 20090218
  Receipt Date: 20090218
  Transmission Date: 20090719
  Serious: Yes (Other)
  Sender: FDA-Public Use
  Company Number: None

PATIENT
  Age: 4 Year
  Sex: Male
  Weight: 21.3191 kg

DRUGS (1)
  1. CHILDREN'S IBUPROFEN [Suspect]
     Indication: PYREXIA
     Dosage: 1 1/2 TEASPOON Q 6 -8 HOURS PO, ONE TIME
     Route: 048
     Dates: start: 20090211, end: 20090211

REACTIONS (3)
  - HALLUCINATION, VISUAL [None]
  - INSOMNIA [None]
  - PRODUCT QUALITY ISSUE [None]
